FAERS Safety Report 6318274-9 (Version None)
Quarter: 2009Q3

REPORT INFORMATION
  Report Type: 
  Country: None (occurrence: None)
  Receive Date: 20090821
  Receipt Date: 20090813
  Transmission Date: 20100115
  Serious: Yes (Life-Threatening, Hospitalization)
  Sender: FDA-Public Use
  Company Number: DE-ABBOTT-09P-062-0578033-00

PATIENT
  Sex: Female
  Weight: 73 kg

DRUGS (11)
  1. HUMIRA [Suspect]
     Indication: RHEUMATOID ARTHRITIS
     Route: 058
     Dates: start: 20051101
  2. HUMIRA [Suspect]
     Route: 058
     Dates: start: 20080922
  3. IMMUNOSPORIN [Suspect]
     Indication: OVERLAP SYNDROME
     Route: 048
     Dates: start: 20040601, end: 20080801
  4. PREDNISOLONE [Concomitant]
     Indication: RHEUMATOID ARTHRITIS
     Route: 051
  5. VALORON [Concomitant]
     Indication: DRUG USE FOR UNKNOWN INDICATION
     Route: 048
  6. INSULINE ACTRAPHANE [Concomitant]
     Indication: DRUG USE FOR UNKNOWN INDICATION
  7. AMITRIPTYLINE [Concomitant]
     Indication: DRUG USE FOR UNKNOWN INDICATION
  8. AMLODIPINE [Concomitant]
     Indication: HYPERTENSION
     Route: 048
  9. FUROSEMIDE [Concomitant]
     Indication: HYPERTENSION
  10. ALLOPURINOLE [Concomitant]
     Indication: DRUG USE FOR UNKNOWN INDICATION
     Route: 048
  11. OMEPRAZOLE [Concomitant]
     Indication: DRUG USE FOR UNKNOWN INDICATION
     Route: 048

REACTIONS (3)
  - NUTRITIONAL CONDITION ABNORMAL [None]
  - PANCREATITIS ACUTE [None]
  - SEPSIS [None]
